FAERS Safety Report 4600110-X (Version None)
Quarter: 2005Q1

REPORT INFORMATION
  Report Type: 
  Country: None (occurrence: None)
  Receive Date: 20050303
  Receipt Date: 20050216
  Transmission Date: 20050727
  Serious: Yes (Hospitalization)
  Sender: FDA-Public Use
  Company Number: 200501307

PATIENT
  Age: 21 Year
  Sex: Female

DRUGS (3)
  1. BOTOX [Suspect]
     Indication: MUSCLE SPASTICITY
     Dosage: UNITS
  2. DEPAKENE [Concomitant]
  3. TEGRETOL [Concomitant]

REACTIONS (6)
  - ASTHENIA [None]
  - BOTULISM [None]
  - DIPLOPIA [None]
  - DYSPHAGIA [None]
  - EYELID PTOSIS [None]
  - HEAD INJURY [None]
